FAERS Safety Report 6532557-9 (Version None)
Quarter: 2010Q1

REPORT INFORMATION
  Report Type: 
  Country: None (occurrence: None)
  Receive Date: 20100111
  Receipt Date: 20100105
  Transmission Date: 20100710
  Serious: Yes (Death, Other)
  Sender: FDA-Public Use
  Company Number: US-CELGENEUS-163-20785-08040645

PATIENT

DRUGS (17)
  1. THALOMID [Suspect]
     Indication: MANTLE CELL LYMPHOMA
     Route: 048
  2. THALOMID [Suspect]
     Dosage: REDUCED TO 100, 50, 25 MG
     Route: 048
  3. RITUXIMAB [Suspect]
     Indication: MANTLE CELL LYMPHOMA
     Route: 051
  4. RITUXIMAB [Suspect]
     Route: 051
  5. DOXORUBICIN HCL [Suspect]
     Indication: MANTLE CELL LYMPHOMA
     Route: 051
  6. CYCLOPHOSPHAMIDE [Suspect]
     Indication: MANTLE CELL LYMPHOMA
     Route: 051
  7. CYCLOPHOSPHAMIDE [Suspect]
     Route: 051
  8. VINCRISTINE [Suspect]
     Indication: MANTLE CELL LYMPHOMA
     Route: 065
  9. METHOTREXATE [Suspect]
     Indication: MANTLE CELL LYMPHOMA
     Dosage: 1.2 G/M^2 / THEN 5.52 G/M^2
     Route: 051
  10. LEUCOVORIN CALCIUM [Suspect]
     Indication: MANTLE CELL LYMPHOMA
     Dosage: 180MG/M^2 / 12 MG/M^2
     Route: 051
  11. CYTARABINE [Suspect]
     Indication: MANTLE CELL LYMPHOMA
     Dosage: 2 G/M^2
     Route: 051
  12. ETOPOSIDE [Suspect]
     Indication: MANTLE CELL LYMPHOMA
     Route: 065
  13. IFOSFAMIDE [Suspect]
     Indication: MANTLE CELL LYMPHOMA
     Route: 065
  14. MESNA [Suspect]
     Indication: MANTLE CELL LYMPHOMA
     Route: 051
  15. NEUPOGEN [Concomitant]
     Indication: DRUG USE FOR UNKNOWN INDICATION
     Route: 065
  16. NEUPOGEN [Concomitant]
     Route: 065
  17. ASPIRIN [Concomitant]
     Indication: DRUG USE FOR UNKNOWN INDICATION
     Route: 065

REACTIONS (11)
  - BRADYCARDIA [None]
  - CONSTIPATION [None]
  - DIARRHOEA [None]
  - DIZZINESS [None]
  - ERECTILE DYSFUNCTION [None]
  - INFECTION [None]
  - NEUROPATHY PERIPHERAL [None]
  - NEUTROPENIA [None]
  - NON-SMALL CELL LUNG CANCER [None]
  - OEDEMA [None]
  - SOMNOLENCE [None]
